FAERS Safety Report 7359616-5 (Version None)
Quarter: 2011Q1

REPORT INFORMATION
  Report Type: 
  Country: None (occurrence: None)
  Receive Date: 20110317
  Receipt Date: 20100128
  Transmission Date: 20110831
  Serious: No
  Sender: FDA-Public Use
  Company Number: US-PFIZER INC-2010012716

PATIENT
  Age: 73 Year
  Sex: Male

DRUGS (4)
  1. COZAAR [Concomitant]
     Dosage: UNK
  2. LIPITOR [Concomitant]
     Indication: BLOOD CREATINE ABNORMAL
     Dosage: UNK
  3. NORVASC [Suspect]
     Indication: HYPERTENSION
     Dosage: 2.5 MG, 1X/DAY
     Dates: start: 20091230
  4. BETOPTIC S [Concomitant]
     Dosage: UNK

REACTIONS (1)
  - VISION BLURRED [None]
